FAERS Safety Report 20092122 (Version 1)
Quarter: 2021Q4

REPORT INFORMATION
  Report Type: Spontaneous
  Country: NL (occurrence: NL)
  Receive Date: 20211119
  Receipt Date: 20211119
  Transmission Date: 20220303
  Serious: Yes (Other)
  Sender: FDA-Public Use
  Company Number: NL-002147023-NVSC2021NL159658

PATIENT
  Age: 69 Year
  Sex: Female
  Weight: 90 kg

DRUGS (30)
  1. OMEPRAZOLE [Suspect]
     Active Substance: OMEPRAZOLE
     Indication: Product used for unknown indication
     Dosage: 40 MILLIGRAM, QD, MORNING: 1 CAPSULE
     Route: 048
     Dates: start: 20210729
  2. OMEPRAZOLE [Suspect]
     Active Substance: OMEPRAZOLE
     Dosage: 20 MILLIGRAM, QD, MORNING: 1 CAPSULE
     Route: 048
     Dates: start: 20210225, end: 20210518
  3. OMEPRAZOLE [Suspect]
     Active Substance: OMEPRAZOLE
     Dosage: 1 DOSAGE FORM, QD
     Route: 048
     Dates: start: 20210603
  4. PRAMIPEXOLE [Suspect]
     Active Substance: PRAMIPEXOLE
     Indication: Product used for unknown indication
     Dosage: 3 MILLIGRAM, QD, 1.5 MG, BID
     Route: 048
     Dates: start: 20210528
  5. PRAMIPEXOLE [Suspect]
     Active Substance: PRAMIPEXOLE
     Dosage: 0.38 MILLIGRAM, 0.375 MG
     Route: 048
     Dates: start: 20210225, end: 20210518
  6. PRAMIPEXOLE [Suspect]
     Active Substance: PRAMIPEXOLE
     Dosage: 4 DOSAGE FORM, QD, (0.375 MG)
     Route: 048
     Dates: start: 20210720
  7. PRAMIPEXOLE [Suspect]
     Active Substance: PRAMIPEXOLE
     Dosage: 8 DOSAGE FORM, QD, 4 DF (0.375 MG), BID
     Route: 048
     Dates: start: 20210811
  8. PRAMIPEXOLE [Suspect]
     Active Substance: PRAMIPEXOLE
     Dosage: UNK
     Route: 065
  9. SPIRONOLACTONE [Concomitant]
     Active Substance: SPIRONOLACTONE
     Indication: Product used for unknown indication
     Dosage: 25 MILLIGRAM, QD
     Route: 048
     Dates: start: 20210820
  10. OXYCODONE HYDROCHLORIDE [Concomitant]
     Active Substance: OXYCODONE HYDROCHLORIDE
     Indication: Product used for unknown indication
     Dosage: 4 DOSAGE FORM, QD, 2 DF (10 MG), BID
     Route: 048
     Dates: start: 20210208, end: 20210426
  11. METOPROLOL SUCCINATE [Concomitant]
     Active Substance: METOPROLOL SUCCINATE
     Indication: Product used for unknown indication
     Dosage: 50 MILLIGRAM, QD
     Route: 048
     Dates: start: 20210614
  12. METOPROLOL SUCCINATE [Concomitant]
     Active Substance: METOPROLOL SUCCINATE
     Dosage: 1.5 DOSAGE FORM, QD, (A TABLET AND A HALF ONCE A DAY)
     Route: 048
     Dates: start: 20210624
  13. TRAMADOL [Concomitant]
     Active Substance: TRAMADOL
     Indication: Product used for unknown indication
     Dosage: 200 MILLIGRAM, QD, 100 MG, BID
     Route: 048
     Dates: start: 20210518
  14. OXAZEPAM [Concomitant]
     Active Substance: OXAZEPAM
     Indication: Product used for unknown indication
     Dosage: 10 MILLIGRAM, QD, (WHEN NECESSARY)
     Route: 048
     Dates: start: 20210811
  15. HERBALS [Concomitant]
     Active Substance: HERBALS
     Indication: Product used for unknown indication
     Dosage: 20 GTT DROPS, QD, 20 DRP, (EVENING)
     Route: 048
     Dates: start: 20210720
  16. LOPERAMIDE HYDROCHLORIDE [Concomitant]
     Active Substance: LOPERAMIDE HYDROCHLORIDE
     Indication: Product used for unknown indication
     Dosage: 2 MILLIGRAM, 2 MG, (START WITH 2 AT ONE GO, THEN 1 AFTER EACH LOOSE STOOL)
     Route: 048
     Dates: start: 20210408
  17. NAPROXEN [Concomitant]
     Active Substance: NAPROXEN
     Indication: Product used for unknown indication
     Dosage: 1000 MILLIGRAM, QD, 500 MG, BID
     Route: 048
     Dates: start: 20210512, end: 20210518
  18. DICLOFENAC [Concomitant]
     Active Substance: DICLOFENAC
     Indication: Product used for unknown indication
     Dosage: 150 MILLIGRAM, QD, 50 MG, TID
     Route: 048
     Dates: start: 20190322
  19. ACETAMINOPHEN [Concomitant]
     Active Substance: ACETAMINOPHEN
     Indication: Product used for unknown indication
     Dosage: 6 DOSAGE FORM, QD, 2 DF (500 MG), TID
     Route: 048
     Dates: start: 20200324
  20. ACETAMINOPHEN [Concomitant]
     Active Substance: ACETAMINOPHEN
     Dosage: 500 MILLIGRAM
     Route: 048
     Dates: start: 20210408, end: 20210422
  21. ACETAMINOPHEN [Concomitant]
     Active Substance: ACETAMINOPHEN
     Dosage: 500 MILLIGRAM
     Route: 048
     Dates: start: 20210520, end: 20210603
  22. ACETAMINOPHEN [Concomitant]
     Active Substance: ACETAMINOPHEN
     Dosage: 500 MILLIGRAM
     Route: 048
     Dates: start: 20210721, end: 20210804
  23. TRIAMCINOLONE ACETONIDE [Concomitant]
     Active Substance: TRIAMCINOLONE ACETONIDE
     Indication: Product used for unknown indication
     Dosage: 1 DOSAGE FORM, QD
     Route: 051
     Dates: start: 20210607
  24. AMOXICILLIN\CLAVULANIC ACID [Concomitant]
     Active Substance: AMOXICILLIN\CLAVULANIC ACID
     Indication: Product used for unknown indication
     Dosage: 1 DOSAGE FORM, (500/125MG)
     Route: 048
     Dates: start: 20210329, end: 20210406
  25. PERINDOPRIL ERBUMINE [Concomitant]
     Active Substance: PERINDOPRIL ERBUMINE
     Indication: Product used for unknown indication
     Dosage: 2 MILLIGRAM, QD
     Route: 065
     Dates: start: 20210820
  26. DOMPERIDONE [Concomitant]
     Active Substance: DOMPERIDONE
     Indication: Product used for unknown indication
     Dosage: 20 MILLIGRAM, QD, 10 MG, BID
     Route: 048
     Dates: start: 20210518
  27. SINEMET [Concomitant]
     Active Substance: CARBIDOPA\LEVODOPA
     Indication: Product used for unknown indication
     Dosage: 8 DOSAGE FORM, QD, 62.5: 50/12.5 MG
     Route: 048
     Dates: start: 20210512
  28. SINEMET [Concomitant]
     Active Substance: CARBIDOPA\LEVODOPA
     Dosage: UNK
     Route: 048
     Dates: start: 20210528
  29. CARBIDOPA\LEVODOPA [Concomitant]
     Active Substance: CARBIDOPA\LEVODOPA
     Indication: Product used for unknown indication
     Dosage: 2 DOSAGE FORM, QD, (100/25 MG), BID
     Route: 048
     Dates: start: 20210610
  30. CLONAZEPAM [Concomitant]
     Active Substance: CLONAZEPAM
     Indication: Product used for unknown indication
     Dosage: 0.5 MILLIGRAM, QD, FOR THE NIGHT; 1 TABLET
     Route: 048
     Dates: start: 20210528

REACTIONS (3)
  - Parkinson^s disease [Unknown]
  - Product residue present [Recovered/Resolved]
  - Drug ineffective [Unknown]

NARRATIVE: CASE EVENT DATE: 20200130
